FAERS Safety Report 17356556 (Version 1)
Quarter: 2020Q1

REPORT INFORMATION
  Report Type: Other
  Country: US (occurrence: US)
  Receive Date: 20200131
  Receipt Date: 20200131
  Transmission Date: 20200409
  Serious: No
  Sender: FDA-Public Use
  Company Number: US-LEADIANT BIOSCIENCES INC-2019STPI000510

PATIENT

DRUGS (18)
  1. ARMOUR THYROID [Concomitant]
     Active Substance: THYROID, PORCINE
  2. BENADRYL [Concomitant]
     Active Substance: DIPHENHYDRAMINE HYDROCHLORIDE
  3. CALCIUM +D3 [Concomitant]
     Active Substance: CALCIUM\CHOLECALCIFEROL
  4. LIDOCREAM [Concomitant]
  5. PLAQUENIL [Concomitant]
     Active Substance: HYDROXYCHLOROQUINE SULFATE
  6. LEXAPRO [Concomitant]
     Active Substance: ESCITALOPRAM OXALATE
  7. ALEVE [Concomitant]
     Active Substance: NAPROXEN SODIUM
  8. LYSINE [Concomitant]
     Active Substance: LYSINE
  9. VITAMIN C [Concomitant]
     Active Substance: ASCORBIC ACID
  10. REVCOVI [Suspect]
     Active Substance: ELAPEGADEMASE-LVLR
     Indication: IMMUNE SYSTEM DISORDER
     Dosage: 9 MILLILITER EVERY TUESDAY AND THURSDAY
     Route: 030
     Dates: start: 20190320
  11. ACYCLOVIR [ACICLOVIR SODIUM] [Concomitant]
     Active Substance: ACYCLOVIR
  12. OMEGA 3 DHA [DOCOSAHEXAENOIC ACID] [Concomitant]
  13. PROBIOTICS NOS [Concomitant]
     Active Substance: PROBIOTICS NOS
  14. HYDROXYZINE [Concomitant]
     Active Substance: HYDROXYZINE HYDROCHLORIDE
  15. IODINE. [Concomitant]
     Active Substance: IODINE
  16. IRON [Concomitant]
     Active Substance: IRON
  17. XANAX [Concomitant]
     Active Substance: ALPRAZOLAM
  18. STRATTERA [Concomitant]
     Active Substance: ATOMOXETINE HYDROCHLORIDE

REACTIONS (2)
  - Herpes zoster [Not Recovered/Not Resolved]
  - Product dose omission [Not Recovered/Not Resolved]
